FAERS Safety Report 14915262 (Version 1)
Quarter: 2018Q2

REPORT INFORMATION
  Report Type: Spontaneous
  Country: CH (occurrence: CH)
  Receive Date: 20180518
  Receipt Date: 20180518
  Transmission Date: 20180711
  Serious: Yes (Hospitalization, Other)
  Sender: FDA-Public Use
  Company Number: CH-JNJFOC-20180523332

PATIENT
  Age: 79 Year
  Sex: Female

DRUGS (16)
  1. SERESTA [Suspect]
     Active Substance: OXAZEPAM
     Indication: MIXED ANXIETY AND DEPRESSIVE DISORDER
     Route: 048
     Dates: start: 20180423, end: 20180423
  2. VESICARE [Suspect]
     Active Substance: SOLIFENACIN SUCCINATE
     Indication: HYPERTONIC BLADDER
     Route: 048
     Dates: start: 2014
  3. ATORVASTATIN PFIZER [Suspect]
     Active Substance: ATORVASTATIN
     Indication: MYOCARDIAL ISCHAEMIA
     Route: 048
     Dates: start: 20180422, end: 20180422
  4. ASPIRIN CARDIO [Suspect]
     Active Substance: ASPIRIN
     Indication: MYOCARDIAL ISCHAEMIA
     Route: 048
     Dates: start: 20180422, end: 20180422
  5. CYMBALTA [Suspect]
     Active Substance: DULOXETINE HYDROCHLORIDE
     Indication: MIXED ANXIETY AND DEPRESSIVE DISORDER
     Route: 048
     Dates: start: 20180422, end: 20180422
  6. SERESTA [Suspect]
     Active Substance: OXAZEPAM
     Indication: MIXED ANXIETY AND DEPRESSIVE DISORDER
     Route: 048
     Dates: start: 20180422, end: 20180422
  7. ZALDIAR [Suspect]
     Active Substance: ACETAMINOPHEN\TRAMADOL HYDROCHLORIDE
     Indication: SPINAL OSTEOARTHRITIS
     Route: 048
     Dates: end: 20180424
  8. CYMBALTA [Suspect]
     Active Substance: DULOXETINE HYDROCHLORIDE
     Indication: MIXED ANXIETY AND DEPRESSIVE DISORDER
     Route: 048
     Dates: end: 20180423
  9. SERESTA [Suspect]
     Active Substance: OXAZEPAM
     Indication: MIXED ANXIETY AND DEPRESSIVE DISORDER
     Route: 048
     Dates: start: 20180424
  10. LAXOBERON [Concomitant]
     Active Substance: SODIUM PICOSULFATE
     Indication: CONSTIPATION
     Route: 048
  11. FURADANTIN [Concomitant]
     Active Substance: NITROFURANTOIN
     Indication: HYPERTONIC BLADDER
     Route: 048
     Dates: start: 2014
  12. VESICARE [Suspect]
     Active Substance: SOLIFENACIN SUCCINATE
     Indication: HYPERTONIC BLADDER
     Route: 048
     Dates: start: 20180422, end: 20180422
  13. ASPIRIN CARDIO [Suspect]
     Active Substance: ASPIRIN
     Indication: MYOCARDIAL ISCHAEMIA
     Route: 048
  14. CYMBALTA [Suspect]
     Active Substance: DULOXETINE HYDROCHLORIDE
     Indication: MIXED ANXIETY AND DEPRESSIVE DISORDER
     Route: 048
     Dates: start: 20180424
  15. ATORVASTATIN PFIZER [Suspect]
     Active Substance: ATORVASTATIN
     Indication: MYOCARDIAL ISCHAEMIA
     Route: 048
  16. SERESTA [Suspect]
     Active Substance: OXAZEPAM
     Indication: MIXED ANXIETY AND DEPRESSIVE DISORDER
     Route: 048

REACTIONS (3)
  - Accidental overdose [Recovered/Resolved]
  - Drug administration error [Recovered/Resolved]
  - Adverse event [Recovered/Resolved]

NARRATIVE: CASE EVENT DATE: 20180422
